FAERS Safety Report 16234322 (Version 2)
Quarter: 2019Q2

REPORT INFORMATION
  Report Type: Spontaneous
  Country: DE (occurrence: DE)
  Receive Date: 20190424
  Receipt Date: 20190502
  Transmission Date: 20190711
  Serious: Yes (Other)
  Sender: FDA-Public Use
  Company Number: DE-MYLANLABS-2019M1037008

PATIENT
  Sex: Female
  Weight: 79 kg

DRUGS (5)
  1. UTROGEST [Concomitant]
     Active Substance: PROGESTERONE
     Dosage: 100 MILLIGRAM, QD (1 CAPSULE PER DAY WHEN USING ESTREVA)
     Route: 048
     Dates: start: 20190312, end: 20190410
  2. ESTREVA? 0,1 % GEL [Suspect]
     Active Substance: ESTRADIOL
     Indication: OESTROGEN DEFICIENCY
     Dosage: UNK, QD (1 HUB, DAILY)
     Route: 003
     Dates: start: 20181209, end: 20190226
  3. CANDESARTAN. [Concomitant]
     Active Substance: CANDESARTAN
     Dosage: 8 MILLIGRAM
  4. ESTREVA? 0,1 % GEL [Suspect]
     Active Substance: ESTRADIOL
     Indication: EYE SYMPTOM
     Dosage: UNK, QD (1 HUB, DAILY)
     Route: 003
     Dates: start: 20190312, end: 20190410
  5. UTROGEST [Concomitant]
     Active Substance: PROGESTERONE
     Indication: PRODUCT USED FOR UNKNOWN INDICATION
     Dosage: 100 MILLIGRAM, QD (1 CAPSULE PER DAY WHEN USING ESTREVA)
     Route: 048
     Dates: start: 20181209, end: 20190226

REACTIONS (3)
  - Haemorrhage [Recovered/Resolved]
  - Product quality issue [Unknown]
  - Therapeutic product effect decreased [Unknown]

NARRATIVE: CASE EVENT DATE: 20190410
